FAERS Safety Report 20422941 (Version 1)
Quarter: 2022Q1

REPORT INFORMATION
  Report Type: Spontaneous
  Country: JP (occurrence: JP)
  Receive Date: 20220203
  Receipt Date: 20220203
  Transmission Date: 20220423
  Serious: Yes (Other)
  Sender: FDA-Public Use
  Company Number: JP-PFIZER INC-202200107181

PATIENT

DRUGS (1)
  1. LYRICA [Suspect]
     Active Substance: PREGABALIN
     Dosage: 25 MG
     Route: 048

REACTIONS (4)
  - Urine output decreased [Unknown]
  - Face oedema [Unknown]
  - Oedema peripheral [Unknown]
  - Oliguria [Unknown]
